FAERS Safety Report 25967574 (Version 2)
Quarter: 2025Q4

REPORT INFORMATION
  Report Type: Report from Study
  Country: US (occurrence: US)
  Receive Date: 20251028
  Receipt Date: 20251030
  Transmission Date: 20260118
  Serious: Yes (Hospitalization, Other)
  Sender: ABBVIE
  Company Number: US-ABBVIE-6107943

PATIENT
  Age: 27 Year
  Sex: Female
  Weight: 87.99 kg

DRUGS (2)
  1. SKYRIZI [Suspect]
     Active Substance: RISANKIZUMAB-RZAA
     Indication: Psoriasis
     Dosage: FORM STRENGTH: 150 MG
     Route: 058
     Dates: start: 20230323, end: 20241128
  2. ASPIRIN [Concomitant]
     Active Substance: ASPIRIN
     Indication: Pre-eclampsia

REACTIONS (13)
  - Vaginal haemorrhage [Recovered/Resolved]
  - Maternal exposure during pregnancy [Unknown]
  - Premature labour [Recovered/Resolved]
  - Placental disorder [Not Recovered/Not Resolved]
  - Blood glucose decreased [Recovered/Resolved]
  - Amniotic fluid index decreased [Not Recovered/Not Resolved]
  - Gestational diabetes [Recovered/Resolved]
  - Malaise [Recovered/Resolved]
  - Somnolence [Recovered/Resolved]
  - Premature rupture of membranes [Recovered/Resolved]
  - Hypotension [Recovered/Resolved]
  - Live birth [Unknown]
  - Psoriasis [Unknown]

NARRATIVE: CASE EVENT DATE: 20250101
